FAERS Safety Report 11751503 (Version 1)
Quarter: 2015Q4

REPORT INFORMATION
  Report Type: Spontaneous
  Country: US (occurrence: US)
  Receive Date: 20151118
  Receipt Date: 20151118
  Transmission Date: 20160304
  Serious: Yes (Death, Congenital Anomaly, Other)
  Sender: FDA-Public Use
  Company Number: PHEH2015US023997

PATIENT
  Sex: Female

DRUGS (2)
  1. ONDANSETRON HYDROCHLORIDE. [Suspect]
     Active Substance: ONDANSETRON HYDROCHLORIDE
     Indication: FOETAL EXPOSURE DURING PREGNANCY
     Dosage: UNK
     Route: 064
  2. ZOFRAN [Suspect]
     Active Substance: ONDANSETRON HYDROCHLORIDE
     Indication: FOETAL EXPOSURE DURING PREGNANCY
     Dosage: UNK
     Route: 064
     Dates: start: 2013

REACTIONS (9)
  - Tricuspid valve disease [Unknown]
  - Injury [Unknown]
  - Congenital anomaly [Unknown]
  - Heart disease congenital [Unknown]
  - Ebstein^s anomaly [Unknown]
  - Emotional distress [Unknown]
  - Foetal exposure during pregnancy [Unknown]
  - Death [Fatal]
  - Cardiomegaly [Unknown]

NARRATIVE: CASE EVENT DATE: 20131116
